FAERS Safety Report 4346505-3 (Version None)
Quarter: 2004Q2

REPORT INFORMATION
  Report Type: 
  Country: None (occurrence: None)
  Receive Date: 20040426
  Receipt Date: 20030930
  Transmission Date: 20050107
  Serious: No
  Sender: FDA-Public Use
  Company Number: US-BRISTOL-MYERS SQUIBB COMPANY-12399135

PATIENT
  Age: 65 Year
  Sex: Female
  Weight: 67 kg

DRUGS (6)
  1. CARBOPLATIN [Suspect]
     Indication: ADENOCARCINOMA
     Route: 042
     Dates: start: 20030301, end: 20030924
  2. ADRIAMYCIN [Concomitant]
     Indication: ADENOCARCINOMA
     Dates: start: 20030801
  3. ANZEMET [Concomitant]
     Indication: PREMEDICATION
     Route: 042
  4. DECADRON [Concomitant]
     Indication: PREMEDICATION
     Route: 042
  5. MAXZIDE [Concomitant]
  6. PRAVACHOL [Concomitant]

REACTIONS (2)
  - PRURITUS [None]
  - URTICARIA [None]
